FAERS Safety Report 8035673-8 (Version None)
Quarter: 2012Q1

REPORT INFORMATION
  Report Type: 
  Country: None (occurrence: None)
  Receive Date: 20120111
  Receipt Date: 20120104
  Transmission Date: 20120608
  Serious: Yes (Other)
  Sender: FDA-Public Use
  Company Number: JP-JNJFOC-20120101819

PATIENT

DRUGS (2)
  1. INFLIXIMAB, RECOMBINANT [Suspect]
     Indication: CROHN'S DISEASE
     Dosage: ONCE EVERY 8 WEEKS FOR MAINTAINANCE DOSE
     Route: 042
  2. INFLIXIMAB, RECOMBINANT [Suspect]
     Dosage: DOSE ON 0, 2, 6 WEEKS DURING THE INDUCTION
     Route: 042

REACTIONS (2)
  - ANAL FISTULA [None]
  - ANAL ABSCESS [None]
